FAERS Safety Report 7372351-2 (Version None)
Quarter: 2011Q1

REPORT INFORMATION
  Report Type: 
  Country: None (occurrence: None)
  Receive Date: 20110324
  Receipt Date: 20110317
  Transmission Date: 20110831
  Serious: Yes (Hospitalization)
  Sender: FDA-Public Use
  Company Number: B0707857A

PATIENT
  Sex: Female

DRUGS (1)
  1. WELLBUTRIN SR [Suspect]
     Route: 048
     Dates: start: 20110228, end: 20110309

REACTIONS (3)
  - RASH GENERALISED [None]
  - DYSPNOEA [None]
  - OEDEMA [None]
